FAERS Safety Report 7112336-4 (Version None)
Quarter: 2010Q4

REPORT INFORMATION
  Report Type: 
  Country: None (occurrence: None)
  Receive Date: 20101119
  Receipt Date: 20100804
  Transmission Date: 20110411
  Serious: No
  Sender: FDA-Public Use
  Company Number: A0874024A

PATIENT
  Age: 74 Year
  Sex: Male

DRUGS (2)
  1. AVODART [Suspect]
     Dosage: 1CAP PER DAY
     Route: 048
  2. AMOXICILLIN [Concomitant]

REACTIONS (1)
  - ACCIDENTAL OVERDOSE [None]
